FAERS Safety Report 21909096 (Version 1)
Quarter: 2023Q1

REPORT INFORMATION
  Report Type: Spontaneous
  Country: US (occurrence: US)
  Receive Date: 20230125
  Receipt Date: 20230125
  Transmission Date: 20230418
  Serious: No
  Sender: FDA-Public Use
  Company Number: US-MYOVANT SCIENCES GMBH-2022MYSCI1000461

PATIENT
  Age: 52 Year
  Sex: Female

DRUGS (3)
  1. MYFEMBREE [Suspect]
     Active Substance: ESTRADIOL HEMIHYDRATE\NORETHINDRONE ACETATE\RELUGOLIX
     Indication: Endometriosis
     Dosage: 1 TAB, QD
     Route: 048
     Dates: start: 20220920, end: 20221018
  2. HERBALS [Concomitant]
     Active Substance: HERBALS
     Indication: Product used for unknown indication
     Route: 065
  3. FLEXERIL                           /00428402/ [Concomitant]
     Indication: Product used for unknown indication
     Route: 065

REACTIONS (3)
  - Breast tenderness [Unknown]
  - Nausea [Unknown]
  - Therapy interrupted [Unknown]

NARRATIVE: CASE EVENT DATE: 20221019
